FAERS Safety Report 23774258 (Version 1)
Quarter: 2024Q2

REPORT INFORMATION
  Report Type: Spontaneous
  Country: CA (occurrence: CA)
  Receive Date: 20240423
  Receipt Date: 20240423
  Transmission Date: 20240716
  Serious: Yes (Hospitalization, Other)
  Sender: FDA-Public Use
  Company Number: CA-AMGEN-CANSP2024077306

PATIENT
  Age: 87 Year
  Sex: Male

DRUGS (1)
  1. PROLIA [Suspect]
     Active Substance: DENOSUMAB
     Indication: Product used for unknown indication
     Dosage: 60 MILLIGRAM, ONE TIME DOSE
     Route: 058

REACTIONS (4)
  - Vitamin D deficiency [Recovered/Resolved]
  - Electrocardiogram QT prolonged [Recovered/Resolved]
  - Muscle twitching [Recovered/Resolved]
  - Hypocalcaemia [Recovered/Resolved]
